FAERS Safety Report 5881525-9 (Version None)
Quarter: 2008Q3

REPORT INFORMATION
  Report Type: 
  Country: None (occurrence: None)
  Receive Date: 20080911
  Receipt Date: 20080829
  Transmission Date: 20090109
  Serious: Yes (Other)
  Sender: FDA-Public Use
  Company Number: DSU-2008-01365

PATIENT
  Age: 64 Year
  Sex: Female
  Weight: 88.905 kg

DRUGS (5)
  1. BENICAR [Suspect]
     Indication: HYPERTENSION
     Dosage: 20 MG (20 MG, QD), PER ORAL
     Route: 048
     Dates: start: 20020101
  2. SIMVASTATIN [Concomitant]
  3. OMEPRAZOLE [Concomitant]
  4. ACTONEL [Concomitant]
  5. CYMBALTA [Concomitant]

REACTIONS (2)
  - BLADDER DISORDER [None]
  - URINARY HESITATION [None]
